FAERS Safety Report 4984770-X (Version None)
Quarter: 2006Q2

REPORT INFORMATION
  Report Type: 
  Country: None (occurrence: None)
  Receive Date: 20060426
  Receipt Date: 20060426
  Transmission Date: 20061013
  Serious: Yes (Hospitalization)
  Sender: FDA-Public Use
  Company Number: None

PATIENT
  Age: 59 Year
  Sex: Male
  Weight: 101.1521 kg

DRUGS (1)
  1. PREDNISONE TAB [Suspect]
     Indication: RHEUMATOID ARTHRITIS
     Dosage: 10 MG DAILY
     Dates: start: 20051220, end: 20060331

REACTIONS (1)
  - ASTHENIA [None]
